FAERS Safety Report 5930372-8 (Version None)
Quarter: 2008Q4

REPORT INFORMATION
  Report Type: 
  Country: None (occurrence: None)
  Receive Date: 20081023
  Receipt Date: 20060511
  Transmission Date: 20090506
  Serious: Yes (Hospitalization, Other)
  Sender: FDA-Public Use
  Company Number: 2006AL002058

PATIENT
  Age: 64 Year
  Sex: Female

DRUGS (4)
  1. DIGOXIN [Suspect]
  2. VERAPAMIL HYDROCHLORIDE [Suspect]
     Dosage: 80 MG UNKNOWN UNK
  3. SOTALOL HCL [Concomitant]
  4. WARFARIN SODIUM [Concomitant]

REACTIONS (14)
  - ABDOMINAL TENDERNESS [None]
  - ANURIA [None]
  - ATRIAL FIBRILLATION [None]
  - BRADYCARDIA [None]
  - DRUG INTERACTION [None]
  - EMBOLISM [None]
  - GLASGOW COMA SCALE ABNORMAL [None]
  - HEART RATE INCREASED [None]
  - HYPOTENSION [None]
  - INTESTINAL ISCHAEMIA [None]
  - METABOLIC ACIDOSIS [None]
  - PULSE ABSENT [None]
  - RESPIRATORY RATE INCREASED [None]
  - SKIN DISORDER [None]
